FAERS Safety Report 9962579 (Version 1)
Quarter: 2014Q1

REPORT INFORMATION
  Report Type: Report from Study
  Country: US (occurrence: US)
  Receive Date: 20140305
  Receipt Date: 20140305
  Transmission Date: 20141002
  Serious: No
  Sender: FDA-Public Use
  Company Number: US-ABBVIE-13P-163-1115678-00

PATIENT
  Age: 34 Year
  Sex: Female
  Weight: 95.34 kg

DRUGS (7)
  1. HUMIRA [Suspect]
     Indication: CROHN^S DISEASE
     Dates: start: 201304, end: 201304
  2. HUMIRA [Suspect]
  3. HUMIRA [Suspect]
  4. COUMADIN [Concomitant]
     Indication: FACTOR V LEIDEN MUTATION
  5. COUMADIN [Concomitant]
     Indication: PROTEIN S DEFICIENCY
  6. OMEPRAZOLE [Concomitant]
     Indication: GASTROOESOPHAGEAL REFLUX DISEASE
     Dates: start: 2009
  7. IMURAN [Concomitant]
     Indication: CROHN^S DISEASE

REACTIONS (13)
  - Acne [Not Recovered/Not Resolved]
  - Unevaluable event [Not Recovered/Not Resolved]
  - Acne pustular [Not Recovered/Not Resolved]
  - Pruritus [Not Recovered/Not Resolved]
  - Pain [Not Recovered/Not Resolved]
  - Myalgia [Not Recovered/Not Resolved]
  - Myalgia [Not Recovered/Not Resolved]
  - Myalgia [Not Recovered/Not Resolved]
  - Hypoaesthesia [Not Recovered/Not Resolved]
  - Paraesthesia [Not Recovered/Not Resolved]
  - Myalgia [Not Recovered/Not Resolved]
  - Hypoaesthesia [Not Recovered/Not Resolved]
  - Paraesthesia [Not Recovered/Not Resolved]
